FAERS Safety Report 13028828 (Version 1)
Quarter: 2016Q4

REPORT INFORMATION
  Report Type: Report from Study
  Country: None (occurrence: TH)
  Receive Date: 20161214
  Receipt Date: 20161214
  Transmission Date: 20170207
  Serious: Yes (Other)
  Sender: FDA-Public Use
  Company Number: TH-ABBVIE-16P-155-1805905-00

PATIENT
  Age: 33 Year
  Sex: Female

DRUGS (3)
  1. LOPINAVIR/RITONAVIR [Suspect]
     Active Substance: LOPINAVIR\RITONAVIR
     Indication: HIV INFECTION
     Dosage: 1000 MG/DAY; PRIOR TO CONCEPTION, EARLIEST EXPOSURE FIRST  TRIMESTER
     Route: 048
  2. ZIDOVUDINE. [Concomitant]
     Active Substance: ZIDOVUDINE
     Indication: HIV INFECTION
     Dosage: 600 MG/DAY; PRIOR TO CONCEPTION, EARLIEST EXPOSURE FIRST  TRIMESTER
     Route: 048
  3. LAMIVUDINE. [Concomitant]
     Active Substance: LAMIVUDINE
     Indication: HIV INFECTION
     Dosage: 300 MG/DAY; PRIOR TO CONCEPTION, EARLIEST EXPOSURE FIRST  TRIMESTER
     Route: 048

REACTIONS (2)
  - Abortion induced [Unknown]
  - Foetal exposure during pregnancy [Unknown]

NARRATIVE: CASE EVENT DATE: 20161102
